FAERS Safety Report 6452006-9 (Version None)
Quarter: 2009Q4

REPORT INFORMATION
  Report Type: 
  Country: None (occurrence: None)
  Receive Date: 20091123
  Receipt Date: 20091114
  Transmission Date: 20100525
  Serious: Yes (Hospitalization, Other)
  Sender: FDA-Public Use
  Company Number: PHHY2009BR50023

PATIENT
  Age: 15 Year
  Sex: Female

DRUGS (3)
  1. RITALIN [Suspect]
     Route: 048
  2. CARBAMAZEPINE [Suspect]
     Route: 048
  3. SERTRALINE HCL [Suspect]
     Route: 048

REACTIONS (3)
  - AGITATION [None]
  - DEPRESSED LEVEL OF CONSCIOUSNESS [None]
  - MIOSIS [None]
